FAERS Safety Report 20814944 (Version 1)
Quarter: 2022Q2

REPORT INFORMATION
  Report Type: Report from Study
  Country: US (occurrence: US)
  Receive Date: 20220511
  Receipt Date: 20220511
  Transmission Date: 20220720
  Serious: Yes (Other)
  Sender: FDA-Public Use
  Company Number: US-BRISTOL-MYERS SQUIBB COMPANY-2022-030926

PATIENT
  Age: 77 Year
  Sex: Female
  Weight: 66.67 kg

DRUGS (1)
  1. POMALYST [Suspect]
     Active Substance: POMALIDOMIDE
     Indication: Plasma cell myeloma
     Dosage: FOR 21 DAYS, REST 7 DAYS
     Route: 048
     Dates: start: 20201030

REACTIONS (1)
  - Cognitive disorder [Unknown]
